FAERS Safety Report 23711860 (Version 1)
Quarter: 2024Q2

REPORT INFORMATION
  Report Type: Spontaneous
  Country: US (occurrence: US)
  Receive Date: 20240405
  Receipt Date: 20240405
  Transmission Date: 20240717
  Serious: Yes (Other)
  Sender: FDA-Public Use
  Company Number: US-ASTELLAS-2024US009803

PATIENT
  Age: 9 Decade
  Sex: Female

DRUGS (10)
  1. IZERVAY [Suspect]
     Active Substance: AVACINCAPTAD PEGOL SODIUM
     Indication: Dry age-related macular degeneration
     Dosage: UNK UNK, UNKNOWN FREQ. (TWO INJECTIONS LEFT EYE (OS))
     Route: 050
  2. IZERVAY [Suspect]
     Active Substance: AVACINCAPTAD PEGOL SODIUM
     Indication: Dry age-related macular degeneration
     Dosage: UNK UNK, UNKNOWN FREQ. (TWO INJECTIONS LEFT EYE (OS))
     Route: 050
  3. IZERVAY [Suspect]
     Active Substance: AVACINCAPTAD PEGOL SODIUM
     Indication: Dry age-related macular degeneration
     Dosage: UNK UNK, UNKNOWN FREQ. (TWO INJECTIONS LEFT EYE (OS))
     Route: 050
  4. IZERVAY [Suspect]
     Active Substance: AVACINCAPTAD PEGOL SODIUM
     Indication: Dry age-related macular degeneration
     Dosage: UNK UNK, UNKNOWN FREQ. (TWO INJECTIONS LEFT EYE (OS))
     Route: 050
  5. IZERVAY [Suspect]
     Active Substance: AVACINCAPTAD PEGOL SODIUM
     Indication: Dry age-related macular degeneration
     Dosage: UNK UNK, UNKNOWN FREQ. (TWO INJECTIONS LEFT EYE (OS))
     Route: 050
  6. IZERVAY [Suspect]
     Active Substance: AVACINCAPTAD PEGOL SODIUM
     Dosage: UNK UNK, UNKNOWN FREQ. (FIRST INJECTION RIGHT EYE (OD))
     Route: 050
  7. IZERVAY [Suspect]
     Active Substance: AVACINCAPTAD PEGOL SODIUM
     Dosage: UNK UNK, UNKNOWN FREQ. (FIRST INJECTION RIGHT EYE (OD))
     Route: 050
  8. IZERVAY [Suspect]
     Active Substance: AVACINCAPTAD PEGOL SODIUM
     Dosage: UNK UNK, UNKNOWN FREQ. (FIRST INJECTION RIGHT EYE (OD))
     Route: 050
  9. IZERVAY [Suspect]
     Active Substance: AVACINCAPTAD PEGOL SODIUM
     Dosage: UNK UNK, UNKNOWN FREQ. (FIRST INJECTION RIGHT EYE (OD))
     Route: 050
  10. IZERVAY [Suspect]
     Active Substance: AVACINCAPTAD PEGOL SODIUM
     Dosage: UNK UNK, UNKNOWN FREQ. (FIRST INJECTION RIGHT EYE (OD))
     Route: 050

REACTIONS (1)
  - Cystoid macular oedema [Recovered/Resolved]

NARRATIVE: CASE EVENT DATE: 20240101
